FAERS Safety Report 9602819 (Version 2)
Quarter: 2013Q4

REPORT INFORMATION
  Report Type: Spontaneous
  Country: US (occurrence: US)
  Receive Date: 20131007
  Receipt Date: 20131202
  Transmission Date: 20140711
  Serious: Yes (Death, Other)
  Sender: FDA-Public Use
  Company Number: US-SA-2013SA097143

PATIENT
  Age: 33 Month
  Sex: Female
  Weight: 21.3 kg

DRUGS (13)
  1. CEREZYME [Suspect]
     Indication: GAUCHER^S DISEASE
     Dosage: EVERY 10 DAYS DOSE:37.4 UNIT(S)/KILOGRAM BODYWEIGHT
     Route: 042
     Dates: start: 20121105, end: 20130910
  2. CEFTRIAXONE [Concomitant]
     Indication: INFECTION
     Route: 042
     Dates: end: 20130910
  3. TOBI [Concomitant]
     Indication: INFECTION
     Dosage: 28 DAYS ALT. MOUTH THERAPY.
     Dates: start: 20130826, end: 20130910
  4. ALL OTHER THERAPEUTIC PRODUCTS [Concomitant]
     Dates: end: 20130910
  5. IRON [Concomitant]
  6. CARNITINE [Concomitant]
  7. TYLENOL [Concomitant]
     Indication: PAIN
     Dosage: PRN
     Dates: end: 20130910
  8. PEPCID [Concomitant]
  9. MORPHINE [Concomitant]
  10. HEPARIN LOCK FLUSH [Concomitant]
  11. IBUPROFEN [Concomitant]
  12. AMITRIPTYLINE [Concomitant]
  13. DEPAKOTE [Concomitant]

REACTIONS (5)
  - Acute respiratory distress syndrome [Fatal]
  - Fat embolism [Unknown]
  - Femur fracture [Unknown]
  - Lung infection [Unknown]
  - Pyrexia [Unknown]
